FAERS Safety Report 11538863 (Version 1)
Quarter: 2015Q3

REPORT INFORMATION
  Report Type: Spontaneous
  Country: CA (occurrence: CA)
  Receive Date: 20150923
  Receipt Date: 20150923
  Transmission Date: 20151125
  Serious: Yes (Other)
  Sender: FDA-Public Use
  Company Number: CA-ORION CORPORATION ORION PHARMA-TREX2015-0588

PATIENT
  Sex: Female

DRUGS (7)
  1. ACTEMRA [Concomitant]
     Active Substance: TOCILIZUMAB
     Route: 065
  2. METHOTREXATE [Suspect]
     Active Substance: METHOTREXATE
     Route: 048
  3. METHOTREXATE [Suspect]
     Active Substance: METHOTREXATE
     Route: 065
  4. ENBREL [Suspect]
     Active Substance: ETANERCEPT
     Route: 065
  5. GOLD [Suspect]
     Active Substance: GOLD
     Route: 065
  6. ORENCIA [Concomitant]
     Active Substance: ABATACEPT
     Route: 065
  7. HUMIRA [Suspect]
     Active Substance: ADALIMUMAB
     Route: 065

REACTIONS (4)
  - Butterfly rash [Unknown]
  - Systemic lupus erythematosus [Unknown]
  - Product quality issue [Unknown]
  - Drug ineffective [Unknown]
